FAERS Safety Report 11636420 (Version 1)
Quarter: 2015Q4

REPORT INFORMATION
  Report Type: Spontaneous
  Country: EC (occurrence: EC)
  Receive Date: 20151016
  Receipt Date: 20151016
  Transmission Date: 20160304
  Serious: Yes (Hospitalization)
  Sender: FDA-Public Use
  Company Number: EC-SA-2015SA127797

PATIENT
  Age: 5 Year
  Sex: Female
  Weight: 17.1 kg

DRUGS (2)
  1. CEREZYME [Suspect]
     Active Substance: IMIGLUCERASE
     Indication: GAUCHER^S DISEASE
     Dosage: DOSE: 1200 UI DOSE:11.69 UNIT(S)/KILOGRAM BODYWEIGHT
     Route: 042
     Dates: start: 201201, end: 2015
  2. CEREZYME [Suspect]
     Active Substance: IMIGLUCERASE
     Indication: GAUCHER^S DISEASE
     Dosage: DOSE:11.69 UNIT(S)/KILOGRAM BODYWEIGHT
     Route: 042
     Dates: start: 20151007

REACTIONS (2)
  - Epistaxis [Recovered/Resolved]
  - Epistaxis [Recovered/Resolved]

NARRATIVE: CASE EVENT DATE: 20150928
